FAERS Safety Report 21470160 (Version 2)
Quarter: 2022Q4

REPORT INFORMATION
  Report Type: Spontaneous
  Country: US (occurrence: US)
  Receive Date: 20221018
  Receipt Date: 20221109
  Transmission Date: 20230113
  Serious: No
  Sender: FDA-Public Use
  Company Number: US-JNJFOC-20221014434

PATIENT
  Age: 56 Year
  Sex: Male

DRUGS (1)
  1. SPRAVATO [Suspect]
     Active Substance: ESKETAMINE
     Indication: Depression

REACTIONS (3)
  - Feeling drunk [Unknown]
  - Drug intolerance [Unknown]
  - Drug ineffective [Unknown]
